FAERS Safety Report 7009431-7 (Version None)
Quarter: 2010Q3

REPORT INFORMATION
  Report Type: 
  Country: None (occurrence: None)
  Receive Date: 20100923
  Receipt Date: 20100909
  Transmission Date: 20110219
  Serious: No
  Sender: FDA-Public Use
  Company Number: US-B.I. PHARMACEUTICALS,INC./RIDGEFIELD-2010-BP-10341BP

PATIENT
  Sex: Female

DRUGS (5)
  1. CATAPRES [Suspect]
     Indication: HYPERTENSION
     Dosage: 0.3 MG
     Route: 061
     Dates: start: 20020101
  2. HYDROCHLOROTHIAZIDE [Concomitant]
     Indication: HYPERTENSION
     Dosage: 25 MG
     Route: 048
     Dates: start: 20020101
  3. TIAZAC [Concomitant]
     Indication: HYPERTENSION
     Dosage: 600 MG
     Route: 048
     Dates: start: 20020101
  4. BENICAR [Concomitant]
     Indication: HYPERTENSION
     Dosage: 40 MG
     Route: 048
     Dates: start: 20020101
  5. TOPROL-XL [Concomitant]
     Indication: HYPERTENSION
     Dosage: 25 MG
     Route: 048
     Dates: start: 20020101

REACTIONS (3)
  - CATARACT [None]
  - MACULAR DEGENERATION [None]
  - VISION BLURRED [None]
